FAERS Safety Report 10150321 (Version 1)
Quarter: 2014Q2

REPORT INFORMATION
  Report Type: Spontaneous
  Country: FR (occurrence: FR)
  Receive Date: 20140502
  Receipt Date: 20140502
  Transmission Date: 20141212
  Serious: Yes (Death, Life-Threatening)
  Sender: FDA-Public Use
  Company Number: FR-BRISTOL-MYERS SQUIBB COMPANY-20668497

PATIENT
  Age: 58 Year
  Sex: Female

DRUGS (3)
  1. COUMADIN TABS [Suspect]
     Route: 048
  2. KARDEGIC [Suspect]
     Route: 048
  3. CALCIUM HEPARINATE [Suspect]

REACTIONS (7)
  - Haemorrhage intracranial [Fatal]
  - Fall [Unknown]
  - Craniocerebral injury [None]
  - Subdural haematoma [None]
  - Convulsion [None]
  - Brain herniation [None]
  - Intracranial pressure increased [None]
